FAERS Safety Report 5764986-5 (Version None)
Quarter: 2008Q2

REPORT INFORMATION
  Report Type: 
  Country: None (occurrence: None)
  Receive Date: 20080606
  Receipt Date: 20080606
  Transmission Date: 20081010
  Serious: No
  Sender: FDA-Public Use
  Company Number: None

PATIENT
  Sex: Female

DRUGS (1)
  1. TRAMADOL HCL [Suspect]
     Indication: ARTHRALGIA
     Dosage: 50MG #30 1-2 EVERY 6 HRS ORAL
     Route: 048
     Dates: start: 20080530, end: 20080531

REACTIONS (3)
  - COLD SWEAT [None]
  - NAUSEA [None]
  - PRURITUS [None]
